FAERS Safety Report 7345690-9 (Version None)
Quarter: 2011Q1

REPORT INFORMATION
  Report Type: 
  Country: None (occurrence: None)
  Receive Date: 20110310
  Receipt Date: 20110303
  Transmission Date: 20110831
  Serious: Yes (Death, Hospitalization)
  Sender: FDA-Public Use
  Company Number: B0705089A

PATIENT
  Age: 73 Year
  Sex: Male

DRUGS (4)
  1. CORTICOSTEROIDS [Concomitant]
  2. ARIXTRA [Suspect]
     Dosage: 2.5MG PER DAY
     Route: 065
  3. BRONCHODILATORS [Concomitant]
     Route: 055
  4. ANTIBIOTICS [Suspect]
     Route: 065

REACTIONS (6)
  - DIARRHOEA [None]
  - CARDIAC ARREST [None]
  - CONTUSION [None]
  - HAEMORRHAGE [None]
  - ATRIAL FIBRILLATION [None]
  - BACK PAIN [None]
